FAERS Safety Report 7961851-X (Version None)
Quarter: 2011Q4

REPORT INFORMATION
  Report Type: 
  Country: None (occurrence: None)
  Receive Date: 20111202
  Receipt Date: 20111202
  Transmission Date: 20120403
  Serious: Yes (Hospitalization)
  Sender: FDA-Public Use
  Company Number: None

PATIENT
  Sex: Female
  Weight: 57.5 kg

DRUGS (8)
  1. FLUCONAZOLE [Concomitant]
  2. METHOTREXATE [Suspect]
     Dosage: 15 MG
  3. ACETAMINOPHEN [Concomitant]
  4. BACTRIM [Concomitant]
  5. ZANTAC [Concomitant]
  6. VINCRISTINE SULFATE [Suspect]
     Dosage: 8 MG
  7. DOXORUBICIN HCL [Suspect]
     Dosage: 96 MG
  8. ONDANSETRON [Concomitant]

REACTIONS (15)
  - ABDOMINAL PAIN [None]
  - HEPATOMEGALY [None]
  - JAUNDICE [None]
  - FEBRILE NEUTROPENIA [None]
  - ASPARTATE AMINOTRANSFERASE INCREASED [None]
  - ASTHENIA [None]
  - ALANINE AMINOTRANSFERASE INCREASED [None]
  - PAIN [None]
  - MYALGIA [None]
  - WEIGHT INCREASED [None]
  - PYREXIA [None]
  - TENDERNESS [None]
  - ABDOMINAL DISTENSION [None]
  - VENOOCCLUSIVE LIVER DISEASE [None]
  - HYPONATRAEMIA [None]
